FAERS Safety Report 4845172-X (Version None)
Quarter: 2005Q4

REPORT INFORMATION
  Report Type: 
  Country: None (occurrence: None)
  Receive Date: 20051129
  Receipt Date: 20051115
  Transmission Date: 20060501
  Serious: Yes (Hospitalization, Other)
  Sender: FDA-Public Use
  Company Number: USA0510112244

PATIENT
  Age: 69 Year
  Sex: Female
  Weight: 99.8 kg

DRUGS (17)
  1. FORTEO [Suspect]
     Dosage: 20 UG, DAILY (1/D)
     Dates: start: 20030101
  2. FORTEO PEN, 250MCG/ML (3ML) (FORTEO PEN 250MCG/ML (3ML)) [Concomitant]
  3. LIPITOR [Concomitant]
  4. COZAAR [Concomitant]
  5. ATENOLOL [Concomitant]
  6. FUROSEMIDE [Concomitant]
  7. LEVOXYL [Concomitant]
  8. POTASSIUM CHLORIDE [Concomitant]
  9. ADVAIR DISKUS 100/50 [Concomitant]
  10. PROVENTIL  /USA/ (SALBUTAMOL SULFATE) [Concomitant]
  11. GLIPIZIDE [Concomitant]
  12. AMBIEN [Concomitant]
  13. MIRALAX [Concomitant]
  14. DARVON [Concomitant]
  15. FLONASE [Concomitant]
  16. CELEBREX [Concomitant]
  17. PROGESTERONE [Concomitant]

REACTIONS (17)
  - ASTHENIA [None]
  - BACK PAIN [None]
  - BLOOD ALKALINE PHOSPHATASE INCREASED [None]
  - BRAIN NEOPLASM MALIGNANT [None]
  - BREAST CANCER IN SITU [None]
  - BREAST CYST [None]
  - DYSARTHRIA [None]
  - DYSPHAGIA [None]
  - DYSPNOEA [None]
  - FACIAL PALSY [None]
  - FACIAL PARESIS [None]
  - FALL [None]
  - HOT FLUSH [None]
  - HYPOACUSIS [None]
  - OCCULT BLOOD POSITIVE [None]
  - SALIVARY HYPERSECRETION [None]
  - SPINAL FUSION SURGERY [None]
